FAERS Safety Report 10880441 (Version 2)
Quarter: 2015Q2

REPORT INFORMATION
  Report Type: Spontaneous
  Country: JP (occurrence: JP)
  Receive Date: 20150303
  Receipt Date: 20150602
  Transmission Date: 20150821
  Serious: Yes (Hospitalization)
  Sender: FDA-Public Use
  Company Number: JP-AMGEN-JPNSP2015019092

PATIENT
  Age: 46 Year
  Sex: Female
  Weight: 52.4 kg

DRUGS (8)
  1. 5-FU                               /00098801/ [Concomitant]
     Active Substance: FLUOROURACIL
     Dosage: UNK UNK, Q2WEEKS
     Route: 040
  2. GASTER [Suspect]
     Active Substance: FAMOTIDINE
     Indication: PRODUCT USED FOR UNKNOWN INDICATION
     Dosage: 20 MG, UNK
     Route: 048
     Dates: start: 20150202
  3. ELPLAT [Concomitant]
     Active Substance: OXALIPLATIN
     Indication: COLON CANCER
     Dosage: 100 MG, Q2WEEKS
     Route: 041
     Dates: start: 20141217, end: 20150202
  4. BETAMETHASONE [Concomitant]
     Active Substance: BETAMETHASONE
     Dosage: 2 MG, UNK
     Route: 048
     Dates: start: 20141217
  5. VECTIBIX [Suspect]
     Active Substance: PANITUMUMAB
     Indication: COLON CANCER
     Dosage: 350 MG, Q2WEEKS
     Route: 041
     Dates: start: 20150105, end: 20150202
  6. WYPAX [Suspect]
     Active Substance: LORAZEPAM
     Indication: PRODUCT USED FOR UNKNOWN INDICATION
     Dosage: 0.5 MG, UNK
     Route: 048
     Dates: start: 20150202
  7. 5-FU                               /00098801/ [Concomitant]
     Active Substance: FLUOROURACIL
     Indication: COLON CANCER
     Dosage: 3500 MG, Q2WEEKS
     Route: 041
     Dates: start: 20141217, end: 20150202
  8. CALCIUM LEVOFOLINATE [Concomitant]
     Active Substance: LEVOLEUCOVORIN CALCIUM
     Indication: COLON CANCER
     Dosage: 300 MG, Q2WEEKS
     Route: 041
     Dates: start: 20141217, end: 20150202

REACTIONS (5)
  - Vomiting [Unknown]
  - Nausea [Unknown]
  - Drug eruption [Recovering/Resolving]
  - Arthralgia [Unknown]
  - Pyrexia [Unknown]

NARRATIVE: CASE EVENT DATE: 20150205
